FAERS Safety Report 18643379 (Version 1)
Quarter: 2020Q4

REPORT INFORMATION
  Report Type: Spontaneous
  Country: CN (occurrence: CN)
  Receive Date: 20201221
  Receipt Date: 20201221
  Transmission Date: 20210114
  Serious: Yes (Hospitalization, Other)
  Sender: FDA-Public Use
  Company Number: CN-PFIZER INC-2020493626

PATIENT
  Age: 18 Month
  Sex: Female

DRUGS (2)
  1. ZOLOFT [Suspect]
     Active Substance: SERTRALINE HYDROCHLORIDE
     Dosage: 4 DF
     Route: 048
     Dates: start: 20201213, end: 20201213
  2. RISPERIDONE. [Suspect]
     Active Substance: RISPERIDONE
     Dosage: 8 DF
     Route: 048
     Dates: start: 20201213, end: 20201213

REACTIONS (8)
  - Tremor [Recovering/Resolving]
  - Infant sedation [Recovering/Resolving]
  - Abnormal sleep-related event [Recovering/Resolving]
  - Somnolence [Recovering/Resolving]
  - Accidental overdose [Unknown]
  - Coagulation time prolonged [Recovering/Resolving]
  - Wrong product administered [Unknown]
  - Platelet count decreased [Recovering/Resolving]

NARRATIVE: CASE EVENT DATE: 202012
